FAERS Safety Report 17537601 (Version 1)
Quarter: 2020Q1

REPORT INFORMATION
  Report Type: Spontaneous
  Country: US (occurrence: US)
  Receive Date: 20200313
  Receipt Date: 20200313
  Transmission Date: 20200409
  Serious: Yes (Death, Life-Threatening, Other)
  Sender: FDA-Public Use
  Company Number: US-STRIDES ARCOLAB LIMITED-2020SP002922

PATIENT
  Age: 13 Year
  Sex: Female

DRUGS (1)
  1. IBUPROFEN. [Suspect]
     Active Substance: IBUPROFEN
     Indication: PRODUCT USED FOR UNKNOWN INDICATION
     Dosage: UNK
     Route: 048

REACTIONS (15)
  - Completed suicide [Fatal]
  - Loss of consciousness [Unknown]
  - Brain injury [Fatal]
  - Vomiting [Unknown]
  - Hypotension [Unknown]
  - Bradycardia [Unknown]
  - Haematochezia [Unknown]
  - Cardiac arrest [Unknown]
  - Brain hypoxia [Unknown]
  - Pulmonary congestion [Unknown]
  - Toxicity to various agents [Fatal]
  - Ischaemia [Unknown]
  - Erythema [Unknown]
  - Rectal haemorrhage [Unknown]
  - Hyperthermia [Unknown]
